FAERS Safety Report 16663587 (Version 2)
Quarter: 2019Q4

REPORT INFORMATION
  Report Type: Report from Study
  Country: US (occurrence: US)
  Receive Date: 20190802
  Receipt Date: 20191212
  Transmission Date: 20200122
  Serious: Yes (Hospitalization, Other)
  Sender: FDA-Public Use
  Company Number: US-EXELIXIS-CABO-19021165

PATIENT
  Age: 75 Year
  Sex: Female

DRUGS (7)
  1. KEPPRA [Concomitant]
     Active Substance: LEVETIRACETAM
     Dosage: UNK
  2. CABOMETYX [Suspect]
     Active Substance: CABOZANTINIB S-MALATE
     Dosage: 40 MG, QD
     Route: 048
  3. METOPROLOL. [Concomitant]
     Active Substance: METOPROLOL
     Dosage: UNK
  4. CABOMETYX [Suspect]
     Active Substance: CABOZANTINIB S-MALATE
     Dosage: 40 MG QD FOR A WEEK FOLLOWED BY A WEEK OFF
     Route: 048
  5. OMEPRAZOLE. [Concomitant]
     Active Substance: OMEPRAZOLE
     Dosage: UNK
  6. ELIQUIS [Concomitant]
     Active Substance: APIXABAN
     Dosage: UNK
  7. CABOMETYX [Suspect]
     Active Substance: CABOZANTINIB S-MALATE
     Indication: RENAL CANCER STAGE IV
     Dosage: 40 MG, QD
     Route: 048
     Dates: start: 201809

REACTIONS (10)
  - Dysphagia [Not Recovered/Not Resolved]
  - Dry mouth [Not Recovered/Not Resolved]
  - Brain neoplasm benign [Unknown]
  - Lip blister [Unknown]
  - Weight decreased [Not Recovered/Not Resolved]
  - Ageusia [Unknown]
  - Lip dry [Not Recovered/Not Resolved]
  - Mucosal inflammation [Unknown]
  - Decreased appetite [Not Recovered/Not Resolved]
  - Fall [Unknown]

NARRATIVE: CASE EVENT DATE: 201809
